FAERS Safety Report 4869766-0 (Version None)
Quarter: 2005Q4

REPORT INFORMATION
  Report Type: 
  Country: None (occurrence: None)
  Receive Date: 20051227
  Receipt Date: 20051216
  Transmission Date: 20060501
  Serious: Yes (Hospitalization, Other)
  Sender: FDA-Public Use
  Company Number: 235789K05USA

PATIENT
  Age: 34 Year
  Sex: Male

DRUGS (5)
  1. REBIF [Suspect]
     Indication: MULTIPLE SCLEROSIS
     Dosage: 44 MCG, 3 IN 1 WEEKS, SUBCUTANEOUS
     Route: 058
     Dates: start: 20050802, end: 20051101
  2. TRANXENE-T-TAB (CLORAZEPATE DIPOTASSIUM) [Concomitant]
  3. TOPAMAX [Concomitant]
  4. PHENOBARBITAL TAB [Concomitant]
  5. CLONAZEPAM [Concomitant]

REACTIONS (5)
  - AURA [None]
  - CONDITION AGGRAVATED [None]
  - CONVULSION [None]
  - RASH [None]
  - TREATMENT NONCOMPLIANCE [None]
